FAERS Safety Report 23834971 (Version 1)
Quarter: 2024Q2

REPORT INFORMATION
  Report Type: Other
  Country: DE (occurrence: None)
  Receive Date: 20240509
  Receipt Date: 20240509
  Transmission Date: 20240716
  Serious: Yes (Hospitalization)
  Sender: FDA-Public Use
  Company Number: DE-ROCHE-3554878

PATIENT
  Age: 64 Year
  Sex: Male
  Weight: 100 kg

DRUGS (4)
  1. OCREVUS [Suspect]
     Active Substance: OCRELIZUMAB
     Indication: Relapsing-remitting multiple sclerosis
     Route: 042
     Dates: start: 20210409
  2. ZOLPIDEM [Concomitant]
     Active Substance: ZOLPIDEM TARTRATE
     Dosage: ONGOING
  3. DICLOFENAC [Concomitant]
     Active Substance: DICLOFENAC
     Indication: Pain
  4. CORTISONE [Concomitant]
     Active Substance: CORTISONE

REACTIONS (1)
  - Organising pneumonia [Recovering/Resolving]

NARRATIVE: CASE EVENT DATE: 20231001
